FAERS Safety Report 8971235 (Version 1)
Quarter: 2012Q4

REPORT INFORMATION
  Report Type: Report from Study
  Country: US (occurrence: US)
  Receive Date: 20121218
  Receipt Date: 20121218
  Transmission Date: 20130627
  Serious: Yes (Hospitalization)
  Sender: FDA-Public Use
  Company Number: US-009507513-1212USA004524

PATIENT
  Age: 50 Year
  Sex: Male
  Weight: 74.37 kg

DRUGS (3)
  1. TEMODAR [Suspect]
     Indication: GLIOBLASTOMA MULTIFORME
     Dosage: 145 mg, qd
     Route: 048
     Dates: start: 20090527
  2. BEVACIZUMAB [Suspect]
     Indication: GLIOBLASTOMA MULTIFORME
     Dosage: 760 mg, biw
     Route: 042
     Dates: start: 20090527
  3. TYLENOL [Concomitant]

REACTIONS (1)
  - Thrombotic thrombocytopenic purpura [Recovered/Resolved with Sequelae]
